FAERS Safety Report 15798104 (Version 1)
Quarter: 2019Q1

REPORT INFORMATION
  Report Type: Spontaneous
  Country: GB (occurrence: GB)
  Receive Date: 20190108
  Receipt Date: 20190108
  Transmission Date: 20190417
  Serious: Yes (Disabling)
  Sender: FDA-Public Use
  Company Number: GB-PFIZER INC-2019004362

PATIENT
  Age: 57 Year
  Sex: Female
  Weight: 120.65 kg

DRUGS (6)
  1. ATORVASTATIN CALCIUM. [Concomitant]
     Active Substance: ATORVASTATIN CALCIUM
     Dosage: UNK
  2. EXENATIDE. [Concomitant]
     Active Substance: EXENATIDE
     Dosage: UNK
  3. METFORMIN [Concomitant]
     Active Substance: METFORMIN HYDROCHLORIDE
     Dosage: UNK
  4. CIPROFLOXACIN HCL [Suspect]
     Active Substance: CIPROFLOXACIN HYDROCHLORIDE
     Indication: DIARRHOEA
     Dosage: 500 MG, 1X/DAY
     Route: 048
     Dates: start: 20130520, end: 20130521
  5. INSULIN [Concomitant]
     Active Substance: INSULIN NOS
     Dosage: UNK
  6. THYROXINE [Concomitant]
     Active Substance: LEVOTHYROXINE
     Dosage: UNK

REACTIONS (1)
  - Tinnitus [Not Recovered/Not Resolved]

NARRATIVE: CASE EVENT DATE: 20130521
